FAERS Safety Report 8830659 (Version 2)
Quarter: 2012Q4

REPORT INFORMATION
  Report Type: Report from Study
  Country: AU (occurrence: AU)
  Receive Date: 20121009
  Receipt Date: 20121115
  Transmission Date: 20130627
  Serious: Yes (Life-Threatening, Other)
  Sender: FDA-Public Use
  Company Number: AU-JNJFOC-20121003374

PATIENT
  Age: 60 Year
  Sex: Female
  Weight: 67 kg

DRUGS (6)
  1. SIMPONI [Suspect]
     Indication: ANKYLOSING SPONDYLITIS
     Route: 058
     Dates: start: 20120628, end: 20120823
  2. SIMPONI [Suspect]
     Indication: ANKYLOSING SPONDYLITIS
     Route: 058
     Dates: start: 20100611, end: 20111016
  3. CELECOXIB [Concomitant]
     Indication: ANKYLOSING SPONDYLITIS
     Route: 048
     Dates: end: 201110
  4. ACTONEL COMBI D [Concomitant]
     Indication: OSTEOPOROSIS
     Dates: start: 201002
  5. METHOTREXATE [Concomitant]
     Dates: start: 2002
  6. PREDNISONE [Concomitant]
     Dates: start: 2008

REACTIONS (2)
  - Ovarian cancer stage II [Recovering/Resolving]
  - Drug ineffective [Unknown]
